FAERS Safety Report 17808818 (Version 1)
Quarter: 2020Q2

REPORT INFORMATION
  Report Type: Spontaneous
  Country: DE (occurrence: DE)
  Receive Date: 20200520
  Receipt Date: 20200520
  Transmission Date: 20200714
  Serious: Yes (Hospitalization)
  Sender: FDA-Public Use
  Company Number: DE-MYLANLABS-2020M1048992

PATIENT
  Age: 74 Year
  Sex: Male
  Weight: 70 kg

DRUGS (8)
  1. TAMSULOSIN [Concomitant]
     Active Substance: TAMSULOSIN
     Dosage: NK MG, 1-0-0-0, TABLETTEN
     Route: 048
  2. METAMIZOL                          /06276701/ [Concomitant]
     Active Substance: METAMIZOLE
     Dosage: 500 MG, 0-0-20-0, TROPFEN
     Route: 048
  3. INSULIN [Concomitant]
     Active Substance: INSULIN NOS
     Dosage: NK IE, 0-0-6-0
     Route: 058
  4. TORASEMIDE [Suspect]
     Active Substance: TORSEMIDE
     Indication: PRODUCT USED FOR UNKNOWN INDICATION
     Dosage: 5 MG, 1-0-0-0, TABLETTEN
     Route: 048
  5. DESLORATADIN [Concomitant]
     Active Substance: DESLORATADINE
     Dosage: 5 MG, 1-0-0-0, TABLETTEN
     Route: 048
  6. GLIBENCLAMID [Concomitant]
     Active Substance: GLYBURIDE
     Dosage: 3.5 MG, 0.5-0-0-0, TABLETTEN
     Route: 048
  7. SITAGLIPTIN [Concomitant]
     Active Substance: SITAGLIPTIN
     Dosage: 50 MG, 1-0-0-0, TABLETTEN
     Route: 048
  8. AMLODIPINE BESILATE W/CANDESARTAN CILEXETIL [Concomitant]
     Dosage: 5|16 MG, 1-0-0-0, KAPSELN
     Route: 048

REACTIONS (2)
  - Blood creatinine increased [Unknown]
  - Condition aggravated [Unknown]
